FAERS Safety Report 23776847 (Version 2)
Quarter: 2024Q3

REPORT INFORMATION
  Report Type: Spontaneous
  Country: FR (occurrence: FR)
  Receive Date: 20240424
  Receipt Date: 20240917
  Transmission Date: 20241016
  Serious: Yes (Other)
  Sender: GLAXOSMITHKLINE
  Company Number: None

PATIENT

DRUGS (5)
  1. LAMOTRIGINE [Suspect]
     Active Substance: LAMOTRIGINE
     Indication: Wrong patient
     Dosage: 150 MG (TOTAL)
     Route: 048
     Dates: start: 20240315
  2. VALPROATE SODIUM [Suspect]
     Active Substance: VALPROATE SODIUM
     Indication: Wrong patient
     Dosage: 1400 MG (TOTAL)
     Route: 048
     Dates: start: 20240315
  3. RIVOTRIL [Suspect]
     Active Substance: CLONAZEPAM
     Indication: Wrong patient
     Dosage: 12 MG (TOTAL)
     Route: 048
     Dates: start: 20240315
  4. CLOZAPINE [Suspect]
     Active Substance: CLOZAPINE
     Indication: Wrong patient
     Dosage: 500 MG (TOTAL)
     Route: 048
     Dates: start: 20240315
  5. LEVOMEPROMAZINE [Suspect]
     Active Substance: LEVOMEPROMAZINE
     Indication: Wrong patient
     Dosage: 300 MG (TOTAL)
     Route: 048
     Dates: start: 20240315

REACTIONS (3)
  - Salivary hypersecretion [Recovered/Resolved]
  - Somnolence [Recovered/Resolved]
  - Wrong patient [Recovered/Resolved]

NARRATIVE: CASE EVENT DATE: 20240315
